FAERS Safety Report 6505437-2 (Version None)
Quarter: 2009Q4

REPORT INFORMATION
  Report Type: 
  Country: None (occurrence: None)
  Receive Date: 20091217
  Receipt Date: 20091217
  Transmission Date: 20100525
  Serious: Yes (Hospitalization)
  Sender: FDA-Public Use
  Company Number: None

PATIENT
  Sex: Female
  Weight: 64.9 kg

DRUGS (21)
  1. POMALIDOMIDE (CC-4047) [Suspect]
     Indication: CHRONIC GRAFT VERSUS HOST DISEASE
     Dosage: 3MG ONCE DAILY ORAL
     Route: 048
     Dates: start: 20090216, end: 20090310
  2. PREDNISONE [Concomitant]
  3. CELLCEPT [Concomitant]
  4. PROGRAF [Concomitant]
  5. RAPAMUNE [Concomitant]
  6. BACTRIM [Concomitant]
  7. ACYCLOVIR [Concomitant]
  8. PEPCID [Concomitant]
  9. PRAVASTATIN [Concomitant]
  10. M.V.I. [Concomitant]
  11. CALCIUM + VITAMIN D [Concomitant]
  12. ASPIRIN [Concomitant]
  13. C-ACETYL CYSTEINE [Concomitant]
  14. LOTEMAX [Concomitant]
  15. OFLOXACIN [Concomitant]
  16. REFRESH DROPS [Concomitant]
  17. FML 1% OINTMENT [Concomitant]
  18. FLAX SEED OIL [Concomitant]
  19. AMBIEN CR [Concomitant]
  20. PROTOPIC [Concomitant]
  21. CLOBETASOL PROPIONATE [Concomitant]

REACTIONS (12)
  - COUGH [None]
  - DIZZINESS [None]
  - DYSPNOEA [None]
  - LOBAR PNEUMONIA [None]
  - NAUSEA [None]
  - PYREXIA [None]
  - RESPIRATORY FAILURE [None]
  - RESPIRATORY SYNCYTIAL VIRUS INFECTION [None]
  - SEPTIC SHOCK [None]
  - SINUS CONGESTION [None]
  - SUPERINFECTION BACTERIAL [None]
  - VOMITING [None]
